FAERS Safety Report 7277634-2 (Version None)
Quarter: 2011Q1

REPORT INFORMATION
  Report Type: 
  Country: None (occurrence: None)
  Receive Date: 20110207
  Receipt Date: 20110128
  Transmission Date: 20110831
  Serious: Yes (Other)
  Sender: FDA-Public Use
  Company Number: US-ASTELLAS-2011US000464

PATIENT

DRUGS (5)
  1. VANCOMYCIN [Concomitant]
     Indication: PRODUCT USED FOR UNKNOWN INDICATION
     Dosage: UNK
     Route: 042
  2. CIPRO [Concomitant]
     Indication: PRODUCT USED FOR UNKNOWN INDICATION
     Dosage: UNK
     Route: 065
  3. CEFTAZIDIME [Concomitant]
     Indication: PRODUCT USED FOR UNKNOWN INDICATION
     Dosage: UNK
     Route: 042
     Dates: end: 20110128
  4. AMBISOME [Suspect]
     Indication: SEPSIS
     Dosage: 5 MG/KG, UNKNOWN/D
     Route: 042
  5. MEROPENEM [Concomitant]
     Indication: PRODUCT USED FOR UNKNOWN INDICATION
     Dosage: UNK
     Route: 065

REACTIONS (2)
  - BLOOD DISORDER [None]
  - HEPATOMEGALY [None]
